FAERS Safety Report 18047155 (Version 1)
Quarter: 2020Q3

REPORT INFORMATION
  Report Type: Spontaneous
  Country: US (occurrence: US)
  Receive Date: 20200721
  Receipt Date: 20200721
  Transmission Date: 20201103
  Serious: No
  Sender: FDA-Public Use
  Company Number: US-ALKEM LABORATORIES LIMITED-US-ALKEM-2020-01482

PATIENT
  Sex: Female

DRUGS (1)
  1. TRIAMCINOLONE ACETONIDE CREAM USP [Suspect]
     Active Substance: TRIAMCINOLONE ACETONIDE
     Indication: ARTHROPOD BITE
     Dosage: USED TWICE AS DIRECTED
     Route: 061

REACTIONS (2)
  - Product use in unapproved indication [Unknown]
  - Fatigue [Unknown]
